FAERS Safety Report 8035514-9 (Version None)
Quarter: 2012Q1

REPORT INFORMATION
  Report Type: 
  Country: None (occurrence: None)
  Receive Date: 20120111
  Receipt Date: 20120105
  Transmission Date: 20120608
  Serious: Yes (Death, Hospitalization, Other)
  Sender: FDA-Public Use
  Company Number: US-CELGENEUS-163-21880-11111143

PATIENT
  Sex: Male

DRUGS (12)
  1. REVLIMID [Suspect]
     Dosage: 25 MILLIGRAM
     Route: 048
     Dates: start: 20090324
  2. MULTI-VITAMINS [Concomitant]
     Route: 065
  3. DECADRON [Concomitant]
     Dosage: 2 TABLET
     Route: 048
     Dates: start: 20090211
  4. REVLIMID [Suspect]
     Indication: MULTIPLE MYELOMA
     Dosage: 25 MILLIGRAM
     Route: 048
     Dates: start: 20090211
  5. LISINOPRIL [Concomitant]
     Indication: HYPERTENSION
     Dosage: 10 MILLIGRAM
     Route: 065
  6. PROCRIT [Concomitant]
     Dosage: 66000 IU (INTERNATIONAL UNIT)
     Route: 065
     Dates: start: 20111012, end: 20111012
  7. STEROID [Concomitant]
     Route: 065
  8. ASPIRIN [Concomitant]
     Dosage: 81 MILLIGRAM
     Route: 048
     Dates: start: 20110615
  9. INTEGRA F [Concomitant]
     Dosage: 40 MILLIGRAM
     Route: 048
     Dates: start: 20111005
  10. POTASSIUM CHLORIDE [Concomitant]
     Route: 065
  11. HYDROCODONE BITARTRATE [Concomitant]
     Indication: PAIN
     Dosage: 5MG/325MG
     Route: 065
     Dates: start: 20110105
  12. VELCADE [Concomitant]
     Dosage: 2 MILLIGRAM
     Route: 065

REACTIONS (8)
  - INTRA-ABDOMINAL HAEMORRHAGE [None]
  - ACUTE RESPIRATORY FAILURE [None]
  - PANCYTOPENIA [None]
  - CHOLECYSTITIS ACUTE [None]
  - FALL [None]
  - MENTAL STATUS CHANGES [None]
  - ASTHENIA [None]
  - ATRIAL FIBRILLATION [None]
